FAERS Safety Report 7637168-X (Version None)
Quarter: 2011Q3

REPORT INFORMATION
  Report Type: 
  Country: None (occurrence: None)
  Receive Date: 20110726
  Receipt Date: 20110713
  Transmission Date: 20111222
  Serious: Yes (Life-Threatening, Hospitalization)
  Sender: FDA-Public Use
  Company Number: PHHY2011US60805

PATIENT
  Sex: Male
  Weight: 83.5 kg

DRUGS (6)
  1. TRICOR [Concomitant]
     Dosage: 145 MG, QD
     Route: 048
  2. EXELON [Suspect]
     Indication: DEMENTIA ALZHEIMER'S TYPE
     Dosage: 4.6 MG, DAILY
     Route: 062
     Dates: start: 20110601
  3. EXELON [Suspect]
     Dosage: 9.5 MG, DAILY
     Route: 062
     Dates: end: 20110702
  4. FLOMAX [Concomitant]
     Dosage: 0.4 MG, QHS
     Route: 048
  5. PYRIDOSTIGMINE BROMIDE [Concomitant]
     Dosage: UNK UKN, UNK
  6. CIPROFLOXACIN [Concomitant]
     Dosage: 500 MG, BID

REACTIONS (13)
  - HYPOTENSION [None]
  - AMNESIA [None]
  - SYNCOPE [None]
  - HAEMATURIA [None]
  - SINUS BRADYCARDIA [None]
  - DYSURIA [None]
  - FEELING ABNORMAL [None]
  - SINUS ARREST [None]
  - BRADYCARDIA [None]
  - UNRESPONSIVE TO STIMULI [None]
  - RESPIRATORY FAILURE [None]
  - ASTHENIA [None]
  - LOSS OF CONSCIOUSNESS [None]
